FAERS Safety Report 5892589-0 (Version None)
Quarter: 2008Q3

REPORT INFORMATION
  Report Type: 
  Country: None (occurrence: None)
  Receive Date: 20080923
  Receipt Date: 20080911
  Transmission Date: 20090109
  Serious: Yes (Hospitalization)
  Sender: FDA-Public Use
  Company Number: GB-ROCHE-586127

PATIENT
  Sex: Female
  Weight: 95 kg

DRUGS (3)
  1. ORLISTAT [Suspect]
     Indication: OBESITY
     Route: 048
     Dates: start: 20071006
  2. METFORMIN HCL [Suspect]
     Route: 048
  3. METFORMIN HCL [Suspect]
     Route: 048

REACTIONS (2)
  - MALAISE [None]
  - OVERDOSE [None]
